FAERS Safety Report 6188620-8 (Version None)
Quarter: 2009Q2

REPORT INFORMATION
  Report Type: 
  Country: None (occurrence: None)
  Receive Date: 20090513
  Receipt Date: 20090507
  Transmission Date: 20091009
  Serious: Yes (Congenital Anomaly)
  Sender: FDA-Public Use
  Company Number: B0573021A

PATIENT

DRUGS (3)
  1. ROPINIROLE [Suspect]
     Indication: PARKINSON'S DISEASE
     Dosage: 21MG PER DAY
     Dates: start: 20060601
  2. DOMPERIDONE [Concomitant]
     Indication: NAUSEA
     Dosage: 30MG PER DAY
     Dates: start: 20060601
  3. OXAZEPAM [Concomitant]
     Dates: start: 20080101

REACTIONS (1)
  - CLEFT PALATE [None]
